FAERS Safety Report 14388401 (Version 2)
Quarter: 2018Q3

REPORT INFORMATION
  Report Type: Spontaneous
  Country: US (occurrence: US)
  Receive Date: 20180115
  Receipt Date: 20180801
  Transmission Date: 20181010
  Serious: Yes (Other)
  Sender: FDA-Public Use
  Company Number: US-SA-2017SA204207

PATIENT
  Age: 52 Year
  Sex: Female
  Weight: 90 kg

DRUGS (13)
  1. NEOSAR [Concomitant]
     Active Substance: CYCLOPHOSPHAMIDE
  2. ONDANSETRON [Concomitant]
     Active Substance: ONDANSETRON
  3. TAXOTERE [Suspect]
     Active Substance: DOCETAXEL
     Dosage: 150 MG,QOW
     Route: 051
     Dates: start: 20070517, end: 20070517
  4. TAXOTERE [Suspect]
     Active Substance: DOCETAXEL
     Indication: BREAST CANCER FEMALE
     Dosage: 150 MG,QOW
     Route: 051
     Dates: start: 20070329, end: 20070329
  5. ADRIAMYCIN [Concomitant]
     Active Substance: DOXORUBICIN HYDROCHLORIDE
  6. CYTOXAN [Concomitant]
     Active Substance: CYCLOPHOSPHAMIDE
  7. DEXAMETHASONE. [Concomitant]
     Active Substance: DEXAMETHASONE
  8. ARIMIDEX [Concomitant]
     Active Substance: ANASTROZOLE
  9. HEPARIN [Concomitant]
     Active Substance: HEPARIN SODIUM
  10. NEULASTA [Concomitant]
     Active Substance: PEGFILGRASTIM
  11. ANZEMET [Concomitant]
     Active Substance: DOLASETRON MESYLATE
  12. ATIVAN [Concomitant]
     Active Substance: LORAZEPAM
  13. LIDOCAINE;PRILOCAINE [Concomitant]

REACTIONS (1)
  - Alopecia [Not Recovered/Not Resolved]

NARRATIVE: CASE EVENT DATE: 20071117
